FAERS Safety Report 12069181 (Version 1)
Quarter: 2016Q1

REPORT INFORMATION
  Report Type: Spontaneous
  Country: US (occurrence: None)
  Receive Date: 20160211
  Receipt Date: 20160211
  Transmission Date: 20160526
  Serious: Yes (Disabling, Other)
  Sender: FDA-Public Use
  Company Number: None

PATIENT
  Age: 65 Year
  Sex: Female
  Weight: 59.88 kg

DRUGS (13)
  1. NEXIUM [Concomitant]
     Active Substance: ESOMEPRAZOLE MAGNESIUM
  2. ADVIL [Concomitant]
     Active Substance: IBUPROFEN
  3. ZYRTEC [Concomitant]
     Active Substance: CETIRIZINE HYDROCHLORIDE
  4. EPIPEN [Concomitant]
     Active Substance: EPINEPHRINE
  5. VENTOLIN HFA INHALER [Concomitant]
  6. LYRICA [Concomitant]
     Active Substance: PREGABALIN
  7. ADVAIR HFA [Concomitant]
     Active Substance: FLUTICASONE PROPIONATE\SALMETEROL XINAFOATE
  8. SYNTHROID [Concomitant]
     Active Substance: LEVOTHYROXINE SODIUM
  9. MULTIVITAMIN [Concomitant]
     Active Substance: VITAMINS
  10. PRAMIPEXOLE. [Suspect]
     Active Substance: PRAMIPEXOLE
     Indication: RESTLESS LEGS SYNDROME
     Route: 048
     Dates: start: 2010, end: 20151008
  11. HYDROCHLOROTHIAZIDE. [Concomitant]
     Active Substance: HYDROCHLOROTHIAZIDE
  12. NORTRIPTYLINE [Concomitant]
     Active Substance: NORTRIPTYLINE
  13. TRAMADOL. [Concomitant]
     Active Substance: TRAMADOL

REACTIONS (15)
  - Spinal compression fracture [None]
  - Tremor [None]
  - Anxiety [None]
  - Head injury [None]
  - Loss of employment [None]
  - Economic problem [None]
  - Fall [None]
  - Memory impairment [None]
  - Insomnia [None]
  - Gambling [None]
  - Marital problem [None]
  - Obsessive-compulsive disorder [None]
  - Dependence [None]
  - Loss of consciousness [None]
  - Abnormal behaviour [None]

NARRATIVE: CASE EVENT DATE: 20120915
